FAERS Safety Report 8796927 (Version 1)
Quarter: 2012Q4

REPORT INFORMATION
  Report Type: 
  Country: IT (occurrence: IT)
  Receive Date: 20120920
  Receipt Date: 20120920
  Transmission Date: 20130627
  Serious: Yes (Other)
  Sender: FDA-Public Use
  Company Number: PHHY2012IT080717

PATIENT
  Age: 9 Year
  Sex: Male

DRUGS (1)
  1. GLIVEC [Suspect]
     Indication: CHRONIC MYELOID LEUKAEMIA
     Dosage: 275 to 324 mg/sqm/day (median 314 mg)
     Dates: start: 200405

REACTIONS (4)
  - Growth retardation [Unknown]
  - Chronic myeloid leukaemia [Unknown]
  - Neoplasm recurrence [Unknown]
  - Bone density decreased [Unknown]
